FAERS Safety Report 9551807 (Version 2)
Quarter: 2013Q4

REPORT INFORMATION
  Report Type: Report from Study
  Country: CA (occurrence: CA)
  Receive Date: 20130925
  Receipt Date: 20131002
  Transmission Date: 20140711
  Serious: Yes (Other)
  Sender: FDA-Public Use
  Company Number: CA-ABBVIE-13P-028-1150911-00

PATIENT
  Age: 24 Year
  Sex: Female
  Weight: 75.82 kg

DRUGS (5)
  1. HUMIRA [Suspect]
     Indication: CROHN^S DISEASE
     Route: 058
     Dates: start: 20110421, end: 2013
  2. HUMIRA [Suspect]
     Dates: start: 20130926
  3. VITAMIN C [Concomitant]
     Indication: URINARY TRACT INFECTION
     Route: 048
     Dates: start: 20120111
  4. IMURAN [Concomitant]
     Indication: CROHN^S DISEASE
     Dosage: 100MG IN THE MORNING AND 75 MG IN THE EVENING
     Route: 048
     Dates: start: 20130626
  5. CRANBERRY [Concomitant]
     Dates: start: 20120111

REACTIONS (2)
  - Dental caries [Recovered/Resolved]
  - Sensitivity of teeth [Recovered/Resolved]
